FAERS Safety Report 9195440 (Version 1)
Quarter: 2013Q1

REPORT INFORMATION
  Report Type: Spontaneous
  Country: US (occurrence: US)
  Receive Date: 20130328
  Receipt Date: 20130328
  Transmission Date: 20140127
  Serious: Yes (Other)
  Sender: FDA-Public Use
  Company Number: US-AMGEN-USASP2013021170

PATIENT
  Age: 57 Year
  Sex: Male

DRUGS (1)
  1. ENBREL [Suspect]
     Indication: PSORIATIC ARTHROPATHY
     Dosage: 50 MG, QWK
     Dates: start: 20040817

REACTIONS (5)
  - Osteotomy [Unknown]
  - Foot operation [Unknown]
  - Procedural complication [Not Recovered/Not Resolved]
  - Rotator cuff repair [Recovered/Resolved]
  - Musculoskeletal pain [Not Recovered/Not Resolved]
